FAERS Safety Report 8881143 (Version 1)
Quarter: 2012Q4

REPORT INFORMATION
  Report Type: 
  Country: AT (occurrence: AT)
  Receive Date: 20121031
  Receipt Date: 20121031
  Transmission Date: 20130627
  Serious: Yes (Other)
  Sender: FDA-Public Use
  Company Number: AT-ASTRAZENECA-2012SE80136

PATIENT
  Sex: Male

DRUGS (3)
  1. SYMBICORT [Suspect]
     Dosage: ON UNKNOWN FREQUENCY
     Route: 055
  2. BERODUAL [Suspect]
  3. OTHER MEDICATIONS [Concomitant]
     Dates: start: 2004, end: 2008

REACTIONS (3)
  - Osteoporosis [Unknown]
  - Rib fracture [Unknown]
  - Contusion [Unknown]
